FAERS Safety Report 9325909 (Version 2)
Quarter: 2013Q4

REPORT INFORMATION
  Report Type: Spontaneous
  Country: US (occurrence: US)
  Receive Date: 20130604
  Receipt Date: 20131113
  Transmission Date: 20140711
  Serious: Yes (Hospitalization, Other)
  Sender: FDA-Public Use
  Company Number: US-BAYER-2013-068180

PATIENT
  Age: 22 Year
  Sex: Female
  Weight: 85.71 kg

DRUGS (8)
  1. YASMIN [Suspect]
     Indication: CONTRACEPTION
     Dosage: UNK
     Dates: start: 200404, end: 20040526
  2. CONCERTA [Concomitant]
  3. PREVACID [Concomitant]
  4. DEMEROL [Concomitant]
  5. PHENERGAN [Concomitant]
  6. SOLU MEDROL [Concomitant]
  7. BENADRYL [Concomitant]
  8. PREDNISONE [Concomitant]

REACTIONS (15)
  - Deep vein thrombosis [Recovered/Resolved]
  - Superior sagittal sinus thrombosis [None]
  - Injury [None]
  - Pain [None]
  - General physical health deterioration [None]
  - Anxiety [None]
  - Emotional distress [None]
  - Pain in extremity [Recovered/Resolved]
  - Local swelling [Recovered/Resolved]
  - Headache [None]
  - Pain of skin [None]
  - Mental disorder [None]
  - Cognitive disorder [None]
  - Breast necrosis [None]
  - Breast abscess [None]
